FAERS Safety Report 4429466-8 (Version None)
Quarter: 2004Q3

REPORT INFORMATION
  Report Type: 
  Country: None (occurrence: None)
  Receive Date: 20040816
  Receipt Date: 20020410
  Transmission Date: 20050211
  Serious: Yes (Hospitalization)
  Sender: FDA-Public Use
  Company Number: 02P-028-0190418-00

PATIENT
  Age: 39 Year
  Sex: Female
  Weight: 65 kg

DRUGS (17)
  1. SYNTHROID [Suspect]
     Dosage: 0.1 MG, 1 IN 1 D, OTHER
     Route: 050
     Dates: start: 20020311, end: 20020318
  2. SYNTHROID [Suspect]
     Dosage: 0.25 MG, 1 IN 1 D, PER ORAL
     Route: 048
     Dates: start: 20020319, end: 20020322
  3. SYNTHROID [Suspect]
     Dosage: 0.15 MG, 1 IN 1 D, PER ORAL
     Route: 048
     Dates: start: 20020322
  4. SYNTHROID [Suspect]
     Dosage: 0.1 MG, 1 IN 1 D, PER ORAL
     Route: 048
     Dates: start: 20020401
  5. SYNTHROID [Suspect]
     Dosage: 0.175 MG, 1 IN 1 D, PER ORAL
     Route: 048
     Dates: start: 20020403
  6. SYNTHROID [Suspect]
     Dosage: 0.15 MG, 1 IN 1 D, PER ORAL
     Route: 048
     Dates: start: 20020409
  7. COLESTYRAMINE [Concomitant]
  8. OCTREOTIDE ACETATE [Concomitant]
  9. ALBUTEROL SULFATE [Concomitant]
  10. INSULIN [Concomitant]
  11. ACETAMINOPHEN [Concomitant]
  12. HEPARIN [Concomitant]
  13. RANITIDINE HYDROCHLORIDE [Concomitant]
  14. FUROSEMIDE [Concomitant]
  15. CEFTIZOXIME SODIUM [Concomitant]
  16. MORPHINE [Concomitant]
  17. MIDAZOLAM HCL [Concomitant]

REACTIONS (3)
  - CONDITION AGGRAVATED [None]
  - HYPOTHYROIDISM [None]
  - MALABSORPTION [None]
